FAERS Safety Report 18703159 (Version 3)
Quarter: 2022Q2

REPORT INFORMATION
  Report Type: Spontaneous
  Country: US (occurrence: US)
  Receive Date: 20210105
  Receipt Date: 20220413
  Transmission Date: 20220721
  Serious: No
  Sender: FDA-Public Use
  Company Number: US-PFIZER INC-2020521299

PATIENT
  Age: 55 Year
  Sex: Male
  Weight: 103.4 kg

DRUGS (9)
  1. INLYTA [Suspect]
     Active Substance: AXITINIB
     Indication: Renal cell carcinoma
     Dosage: 5 MG, 2X/DAY(EVERY 12 HOURS)
     Route: 048
     Dates: start: 20201211
  2. INLYTA [Suspect]
     Active Substance: AXITINIB
     Indication: Malignant neoplasm of renal pelvis
     Dosage: 3 MG, 2X/DAY [INLYTA 1 MG TABLET/ 3MG ORAL/ EVERY 12 HOURS]
     Route: 048
  3. INLYTA [Suspect]
     Active Substance: AXITINIB
     Dosage: 2 MG
  4. TYLENOL [Concomitant]
     Active Substance: ACETAMINOPHEN
     Dosage: UNK
  5. VITAMIN C [Concomitant]
     Active Substance: ASCORBIC ACID
     Dosage: UNK
  6. TRIAMCINOLONE [Concomitant]
     Active Substance: TRIAMCINOLONE
     Dosage: UNK
  7. ATORVASTATIN CALCIUM [Concomitant]
     Active Substance: ATORVASTATIN CALCIUM
     Dosage: 10 MG
  8. TAMSULOSIN HYDROCHLORIDE [Concomitant]
     Active Substance: TAMSULOSIN HYDROCHLORIDE
     Dosage: 0.4 MG
  9. HYDROCHLOROTHIAZIDE [Concomitant]
     Active Substance: HYDROCHLOROTHIAZIDE
     Dosage: 12.5 MG

REACTIONS (6)
  - Pain in extremity [Unknown]
  - Skin disorder [Recovering/Resolving]
  - Throat irritation [Unknown]
  - Skin erosion [Unknown]
  - Burning sensation [Unknown]
  - Glossitis [Unknown]
